FAERS Safety Report 23152180 (Version 2)
Quarter: 2023Q4

REPORT INFORMATION
  Report Type: Report from Study
  Country: US (occurrence: None)
  Receive Date: 20231107
  Receipt Date: 20231109
  Transmission Date: 20240109
  Serious: Yes (Hospitalization)
  Sender: FDA-Public Use
  Company Number: US-ROCHE-3449660

PATIENT
  Age: 44 Year
  Sex: Male
  Weight: 132 kg

DRUGS (4)
  1. OCRELIZUMAB [Suspect]
     Active Substance: OCRELIZUMAB
     Indication: Relapsing-remitting multiple sclerosis
     Route: 042
     Dates: start: 20221208
  2. OCRELIZUMAB [Suspect]
     Active Substance: OCRELIZUMAB
     Indication: Relapsing-remitting multiple sclerosis
     Dosage: DOSE OF LAST STUDY DRUG ADMIN PRIOR AE + SAE IS 920 MG.
     Route: 058
     Dates: start: 20230524
  3. HYALURONIDASE (HUMAN RECOMBINANT) [Suspect]
     Active Substance: HYALURONIDASE (HUMAN RECOMBINANT)
     Indication: Relapsing-remitting multiple sclerosis
     Dosage: DOSE OF LAST STUDY DRUG ADMIN PRIOR AE + SAE IS 920 MG.
     Route: 058
     Dates: start: 20230524
  4. METHYLPHENIDATE [Concomitant]
     Active Substance: METHYLPHENIDATE
     Indication: Attention deficit hyperactivity disorder
     Route: 048
     Dates: start: 202302

REACTIONS (1)
  - Urinary tract infection [Not Recovered/Not Resolved]

NARRATIVE: CASE EVENT DATE: 20231029
